FAERS Safety Report 8428678-6 (Version None)
Quarter: 2012Q2

REPORT INFORMATION
  Report Type: 
  Country: None (occurrence: None)
  Receive Date: 20120606
  Receipt Date: 20120528
  Transmission Date: 20120825
  Serious: Yes (Hospitalization)
  Sender: FDA-Public Use
  Company Number: 1301835

PATIENT
  Age: 65 Year
  Sex: Female

DRUGS (1)
  1. CARBOPLATIN [Suspect]
     Indication: OVARIAN CANCER
     Dosage: 412 MG, INTRAVENOUS DRIP
     Route: 041

REACTIONS (9)
  - CONFUSIONAL STATE [None]
  - HYPOTENSION [None]
  - ACUTE RESPIRATORY DISTRESS SYNDROME [None]
  - HYPERSENSITIVITY [None]
  - RESPIRATORY FAILURE [None]
  - TOXICITY TO VARIOUS AGENTS [None]
  - INFUSION RELATED REACTION [None]
  - HEART RATE INCREASED [None]
  - SEPSIS [None]
